FAERS Safety Report 8169929-5 (Version None)
Quarter: 2012Q1

REPORT INFORMATION
  Report Type: 
  Country: None (occurrence: None)
  Receive Date: 20120228
  Receipt Date: 20120228
  Transmission Date: 20120608
  Serious: Yes (Hospitalization)
  Sender: FDA-Public Use
  Company Number: None

PATIENT
  Sex: Female

DRUGS (1)
  1. TYLENOL PM [Suspect]
     Indication: HERPES VIRUS INFECTION
     Dosage: 500MG APAP/ 25MG DIPHENHYDRAMI
     Route: 067

REACTIONS (3)
  - CHEMICAL INJURY [None]
  - BURNS SECOND DEGREE [None]
  - INCORRECT ROUTE OF DRUG ADMINISTRATION [None]
